FAERS Safety Report 19010784 (Version 1)
Quarter: 2021Q1

REPORT INFORMATION
  Report Type: Spontaneous
  Country: RU (occurrence: RU)
  Receive Date: 20210315
  Receipt Date: 20210315
  Transmission Date: 20210420
  Serious: Yes (Other)
  Sender: FDA-Public Use
  Company Number: RU-CIRCASSIA PHARMACEUTICALS INC-2021RU002077

PATIENT

DRUGS (1)
  1. BRETARIS [Suspect]
     Active Substance: ACLIDINIUM BROMIDE
     Indication: PRODUCT USED FOR UNKNOWN INDICATION
     Dosage: 322 MCG\DOSE, 60 DOSES ; UNKNOWN FREQUENCY
     Route: 055

REACTIONS (2)
  - Device malfunction [Unknown]
  - Asphyxia [Unknown]
